FAERS Safety Report 5567895-X (Version None)
Quarter: 2007Q4

REPORT INFORMATION
  Report Type: 
  Country: None (occurrence: None)
  Receive Date: 20071218
  Receipt Date: 20071205
  Transmission Date: 20080405
  Serious: Yes (Hospitalization)
  Sender: FDA-Public Use
  Company Number: 2007VX002922

PATIENT
  Age: 59 Year
  Sex: Female
  Weight: 73.4827 kg

DRUGS (6)
  1. ZELAPAR [Suspect]
     Indication: PARKINSON'S DISEASE
     Dosage: 1.25 MG;QD;PO
     Route: 048
     Dates: start: 20070919, end: 20070929
  2. STALEVO 100 [Concomitant]
  3. LEXAPRO [Concomitant]
  4. PRAMIPREXOLE [Concomitant]
  5. NEURONTIN [Concomitant]
  6. LORAZEPAM [Concomitant]

REACTIONS (7)
  - DYSARTHRIA [None]
  - FALL [None]
  - HAEMOPTYSIS [None]
  - HEADACHE [None]
  - PULMONARY EMBOLISM [None]
  - SYNCOPE [None]
  - THROMBOSIS [None]
